FAERS Safety Report 16394962 (Version 1)
Quarter: 2019Q2

REPORT INFORMATION
  Report Type: Spontaneous
  Country: US (occurrence: US)
  Receive Date: 20190604
  Receipt Date: 20190604
  Transmission Date: 20190711
  Serious: Yes (Life-Threatening, Hospitalization)
  Sender: FDA-Public Use
  Company Number: None

PATIENT
  Age: 19 Year
  Sex: Female
  Weight: 55 kg

DRUGS (3)
  1. XYLOSE-D [Suspect]
     Active Substance: XYLOSE
     Indication: SEIZURE
     Dosage: ?          OTHER FREQUENCY:ONE TIME;OTHER ROUTE:G-TUBE?
     Dates: start: 20190409, end: 20190524
  2. DIPHENHYDRAMINE. [Suspect]
     Active Substance: DIPHENHYDRAMINE
  3. D-XYLOSE [Concomitant]
     Active Substance: XYLOSE
     Dates: start: 20190409, end: 20190524

REACTIONS (4)
  - Epilepsy [None]
  - Wrong product administered [None]
  - Blood pressure decreased [None]
  - Burning sensation [None]

NARRATIVE: CASE EVENT DATE: 20190409
